FAERS Safety Report 16707826 (Version 1)
Quarter: 2019Q3

REPORT INFORMATION
  Report Type: Spontaneous
  Country: BR (occurrence: BR)
  Receive Date: 20190815
  Receipt Date: 20190815
  Transmission Date: 20191004
  Serious: Yes (Other)
  Sender: FDA-Public Use
  Company Number: PHHY2019BR177388

PATIENT
  Sex: Female
  Weight: 63 kg

DRUGS (5)
  1. FLUOXETINE [Suspect]
     Active Substance: FLUOXETINE HYDROCHLORIDE
     Indication: DEPRESSION
     Dosage: 1 DF, QD (AT DAY)
     Route: 048
  2. SIMVASTATIN. [Suspect]
     Active Substance: SIMVASTATIN
     Indication: BLOOD CHOLESTEROL INCREASED
     Dosage: 150 MG, UNK
     Route: 065
  3. SIMVASTATIN. [Suspect]
     Active Substance: SIMVASTATIN
     Dosage: 1 DF, QD (AT DAY (AT NIGHT))
     Route: 048
  4. ROSULIB [Suspect]
     Active Substance: ROSUVASTATIN
     Indication: MYALGIA
     Dosage: 1 DF, QD (AT NIGHT)
     Route: 048
     Dates: start: 201907
  5. ROSULIB [Suspect]
     Active Substance: ROSUVASTATIN
     Indication: BLOOD CHOLESTEROL INCREASED

REACTIONS (5)
  - Tendonitis [Recovered/Resolved]
  - Myalgia [Recovered/Resolved]
  - Plantar fasciitis [Not Recovered/Not Resolved]
  - Plantar fasciitis [Recovered/Resolved]
  - Product use in unapproved indication [Unknown]
